FAERS Safety Report 5802940-5 (Version None)
Quarter: 2008Q3

REPORT INFORMATION
  Report Type: 
  Country: None (occurrence: None)
  Receive Date: 20080708
  Receipt Date: 20080627
  Transmission Date: 20090109
  Serious: Yes (Other)
  Sender: FDA-Public Use
  Company Number: US-ROCHE-521769

PATIENT
  Sex: Female
  Weight: 136.1 kg

DRUGS (4)
  1. ACCUTANE [Suspect]
     Route: 048
     Dates: start: 20021204, end: 20030521
  2. ACETAMINOPHEN W/ PROPOXYPHENE HCL [Concomitant]
  3. CIPRO [Concomitant]
  4. COLCHICINE [Concomitant]

REACTIONS (19)
  - ACNE [None]
  - ANXIETY [None]
  - ARTHRALGIA [None]
  - CERVICAL DYSPLASIA [None]
  - COLITIS [None]
  - COLITIS ULCERATIVE [None]
  - CROHN'S DISEASE [None]
  - CYST [None]
  - DEPRESSION [None]
  - EPISTAXIS [None]
  - FRACTURE [None]
  - ILEITIS [None]
  - INFLAMMATORY BOWEL DISEASE [None]
  - INTESTINAL OBSTRUCTION [None]
  - IRRITABLE BOWEL SYNDROME [None]
  - LIP DRY [None]
  - STITCH ABSCESS [None]
  - STRESS [None]
  - SUICIDAL IDEATION [None]
